FAERS Safety Report 21666955 (Version 1)
Quarter: 2022Q4

REPORT INFORMATION
  Report Type: Report from Study
  Country: US (occurrence: US)
  Receive Date: 20221201
  Receipt Date: 20221201
  Transmission Date: 20230112
  Serious: No
  Sender: FDA-Public Use
  Company Number: US-ABBVIE-22K-163-4531679-00

PATIENT
  Sex: Male
  Weight: 69.853 kg

DRUGS (2)
  1. IMBRUVICA [Suspect]
     Active Substance: IBRUTINIB
     Indication: Non-Hodgkin^s lymphoma
     Route: 048
     Dates: start: 2019, end: 202206
  2. IMBRUVICA [Suspect]
     Active Substance: IBRUTINIB
     Indication: Non-Hodgkin^s lymphoma
     Dates: end: 202208

REACTIONS (15)
  - Immunodeficiency [Unknown]
  - Dizziness [Not Recovered/Not Resolved]
  - Loss of personal independence in daily activities [Not Recovered/Not Resolved]
  - Aggression [Recovered/Resolved]
  - Weight decreased [Unknown]
  - Gait disturbance [Unknown]
  - Memory impairment [Recovering/Resolving]
  - Asthenia [Not Recovered/Not Resolved]
  - Pyrexia [Recovered/Resolved]
  - Mental impairment [Not Recovered/Not Resolved]
  - Feeling abnormal [Recovered/Resolved]
  - Hypertension [Unknown]
  - Asthenia [Not Recovered/Not Resolved]
  - Illness [Recovering/Resolving]
  - Haemoglobin decreased [Unknown]

NARRATIVE: CASE EVENT DATE: 20220101
